FAERS Safety Report 25484980 (Version 1)
Quarter: 2025Q2

REPORT INFORMATION
  Report Type: Spontaneous
  Country: FR (occurrence: FR)
  Receive Date: 20250626
  Receipt Date: 20250626
  Transmission Date: 20250716
  Serious: Yes (Hospitalization)
  Sender: RANBAXY
  Company Number: FR-AFSSAPS-LL2025000327

PATIENT
  Age: 58 Year
  Sex: Female

DRUGS (1)
  1. AMLODIPINE [Suspect]
     Active Substance: AMLODIPINE BESYLATE
     Indication: Hypertension
     Route: 048
     Dates: start: 20241101, end: 20241201

REACTIONS (2)
  - Condition aggravated [Not Recovered/Not Resolved]
  - Hypertonia [Not Recovered/Not Resolved]

NARRATIVE: CASE EVENT DATE: 20241129
